FAERS Safety Report 10182003 (Version 1)
Quarter: 2014Q2

REPORT INFORMATION
  Report Type: Spontaneous
  Country: IE (occurrence: IE)
  Receive Date: 20140519
  Receipt Date: 20140519
  Transmission Date: 20141212
  Serious: Yes (Other)
  Sender: FDA-Public Use
  Company Number: IE-ABBVIE-14P-229-1236897-00

PATIENT
  Sex: Female

DRUGS (5)
  1. HUMIRA [Suspect]
     Indication: CROHN^S DISEASE
     Dosage: EVERY OTHER WEEK
     Route: 058
     Dates: start: 20140214
  2. HUMIRA [Suspect]
     Dosage: EVERY OTHER WEEK
     Route: 058
  3. HUMIRA [Suspect]
     Dosage: EVERY OTHER WEEK
     Route: 058
  4. SERC [Concomitant]
     Indication: PRODUCT USED FOR UNKNOWN INDICATION
     Route: 065
  5. MOLIPAXIN [Concomitant]
     Indication: PRODUCT USED FOR UNKNOWN INDICATION
     Route: 065

REACTIONS (2)
  - Intestinal obstruction [Recovering/Resolving]
  - Weight increased [Recovering/Resolving]
